FAERS Safety Report 6376066-9 (Version None)
Quarter: 2009Q3

REPORT INFORMATION
  Report Type: 
  Country: None (occurrence: None)
  Receive Date: 20090924
  Receipt Date: 20090916
  Transmission Date: 20100115
  Serious: Yes (Other)
  Sender: FDA-Public Use
  Company Number: US-GENENTECH-290672

PATIENT
  Age: 75 Year
  Sex: Male

DRUGS (3)
  1. AVASTIN [Suspect]
     Indication: NON-SMALL CELL LUNG CANCER
     Dosage: UNK
     Route: 042
  2. PACLITAXEL [Concomitant]
     Indication: NON-SMALL CELL LUNG CANCER
  3. CARBOPLATIN [Concomitant]
     Indication: NON-SMALL CELL LUNG CANCER

REACTIONS (1)
  - PORTAL VENOUS GAS [None]
